FAERS Safety Report 25247346 (Version 2)
Quarter: 2025Q2

REPORT INFORMATION
  Report Type: Spontaneous
  Country: IT (occurrence: IT)
  Receive Date: 20250428
  Receipt Date: 20250509
  Transmission Date: 20250716
  Serious: Yes (Hospitalization, Other)
  Sender: BAUSCH AND LOMB
  Company Number: IT-BAUSCH-BL-2025-005400

PATIENT
  Sex: Female

DRUGS (5)
  1. DEXAMETHASONE [Suspect]
     Active Substance: DEXAMETHASONE
     Indication: Plasmacytoma
     Route: 065
     Dates: start: 2007, end: 2007
  2. DEXAMETHASONE [Suspect]
     Active Substance: DEXAMETHASONE
     Route: 065
     Dates: start: 2008
  3. THALIDOMIDE [Suspect]
     Active Substance: THALIDOMIDE
     Indication: Plasmacytoma
     Route: 065
     Dates: start: 2007, end: 2007
  4. BORTEZOMIB [Suspect]
     Active Substance: BORTEZOMIB
     Indication: Plasmacytoma
     Route: 065
     Dates: start: 2008
  5. WARFARIN [Concomitant]
     Active Substance: WARFARIN
     Indication: Product used for unknown indication
     Dates: end: 2011

REACTIONS (2)
  - Pulmonary embolism [Unknown]
  - Cerebrovascular accident [Unknown]

NARRATIVE: CASE EVENT DATE: 20070101
